FAERS Safety Report 7059928-9 (Version None)
Quarter: 2010Q4

REPORT INFORMATION
  Report Type: 
  Country: None (occurrence: None)
  Receive Date: 20101025
  Receipt Date: 20101019
  Transmission Date: 20110411
  Serious: Yes (Hospitalization)
  Sender: FDA-Public Use
  Company Number: CO-WYE-H18284610

PATIENT
  Sex: Male

DRUGS (3)
  1. RAPAMUNE [Suspect]
     Indication: PROPHYLAXIS AGAINST TRANSPLANT REJECTION
     Route: 048
     Dates: start: 20090812, end: 20100501
  2. METOPROLOL [Concomitant]
     Indication: HYPERTENSION
     Route: 048
  3. AMLODIPINE BESYLATE [Suspect]
     Indication: HYPERTENSION
     Route: 048

REACTIONS (3)
  - HERPES VIRUS INFECTION [None]
  - RENAL FAILURE [None]
  - VIRAL INFECTION [None]
